FAERS Safety Report 24595135 (Version 1)
Quarter: 2024Q4

REPORT INFORMATION
  Report Type: Spontaneous
  Country: US (occurrence: None)
  Receive Date: 20241108
  Receipt Date: 20241108
  Transmission Date: 20250114
  Serious: Yes (Death)
  Sender: Public
  Company Number: None

PATIENT
  Age: 84 Year
  Sex: Female

DRUGS (1)
  1. LECANEMAB [Suspect]
     Active Substance: LECANEMAB

REACTIONS (11)
  - Disorientation [None]
  - Decreased appetite [None]
  - Altered visual depth perception [None]
  - Mental impairment [None]
  - Amyloid related imaging abnormality-oedema/effusion [None]
  - Amyloid related imaging abnormality-microhaemorrhages and haemosiderin deposits [None]
  - Status epilepticus [None]
  - Wound infection [None]
  - Somnolence [None]
  - Confusional state [None]
  - Neurological decompensation [None]
